APPROVED DRUG PRODUCT: PFIZERPEN-AS
Active Ingredient: PENICILLIN G PROCAINE
Strength: 300,000 UNITS/ML
Dosage Form/Route: INJECTABLE;INJECTION
Application: A060286 | Product #001
Applicant: PFIZER LABORATORIES DIV PFIZER INC
Approved: Approved Prior to Jan 1, 1982 | RLD: No | RS: No | Type: DISCN